FAERS Safety Report 4682399-4 (Version None)
Quarter: 2005Q2

REPORT INFORMATION
  Report Type: 
  Country: None (occurrence: None)
  Receive Date: 20050602
  Receipt Date: 20050602
  Transmission Date: 20051028
  Serious: Yes (Hospitalization)
  Sender: FDA-Public Use
  Company Number: None

PATIENT
  Age: 36 Year
  Sex: Female
  Weight: 79.3795 kg

DRUGS (2)
  1. YASMIN [Suspect]
     Indication: MENSTRUATION IRREGULAR
     Dosage: 1 TAB PO QD
     Route: 048
     Dates: start: 20040823, end: 20041005
  2. CORTISLIM (DIET PILLS) [Suspect]
     Indication: WEIGHT DECREASED
     Dosage: DOSE/FREQ UNK; PO
     Route: 048
     Dates: start: 20040701, end: 20041001

REACTIONS (1)
  - ACUTE MYOCARDIAL INFARCTION [None]
